FAERS Safety Report 6556814-5 (Version None)
Quarter: 2010Q1

REPORT INFORMATION
  Report Type: 
  Country: None (occurrence: None)
  Receive Date: 20100128
  Receipt Date: 20100119
  Transmission Date: 20100710
  Serious: Yes (Other)
  Sender: FDA-Public Use
  Company Number: PHHY2010TH01063

PATIENT
  Age: 70 Year
  Sex: Male

DRUGS (7)
  1. EXELON [Suspect]
     Dosage: 5CM2,UNK
  2. EXELON [Suspect]
     Dosage: 10CM2,UNK
  3. EXELON [Suspect]
     Dosage: 5CM2, UNK
  4. SIMVASTATIN [Concomitant]
     Dosage: UNK,UNK
  5. HYDROCHLOROTHIAZIDE [Concomitant]
     Dosage: UNK,UNK
  6. ENALAPRIL MALEATE [Concomitant]
     Dosage: UNK,UNK
  7. MULTI-VITAMIN [Concomitant]
     Dosage: UNK,UNK

REACTIONS (3)
  - AORTIC VALVE INCOMPETENCE [None]
  - BLOOD PRESSURE INCREASED [None]
  - DYSPNOEA [None]
